FAERS Safety Report 12071755 (Version 1)
Quarter: 2016Q1

REPORT INFORMATION
  Report Type: Spontaneous
  Country: US (occurrence: US)
  Receive Date: 20160212
  Receipt Date: 20160212
  Transmission Date: 20160526
  Serious: Yes (Other)
  Sender: FDA-Public Use
  Company Number: US-009507513-1602USA004866

PATIENT
  Age: 70 Year
  Sex: Male

DRUGS (2)
  1. INTRON A [Suspect]
     Active Substance: INTERFERON ALFA-2B
     Indication: SQUAMOUS CELL CARCINOMA
  2. INTRON A [Suspect]
     Active Substance: INTERFERON ALFA-2B
     Indication: OCULAR NEOPLASM
     Dosage: 1 MILLION IU/ML, Q4D, 2 MONTH COURSE

REACTIONS (1)
  - Drug ineffective [Not Recovered/Not Resolved]
